FAERS Safety Report 11314204 (Version 3)
Quarter: 2016Q1

REPORT INFORMATION
  Report Type: Spontaneous
  Country: FR (occurrence: FR)
  Receive Date: 20150727
  Receipt Date: 20160118
  Transmission Date: 20160525
  Serious: Yes (Hospitalization, Other)
  Sender: FDA-Public Use
  Company Number: FR-IPSEN BIOPHARMACEUTICALS, INC.-2015-6390

PATIENT
  Sex: Male

DRUGS (1)
  1. DYSPORT [Suspect]
     Active Substance: ABOBOTULINUMTOXINA
     Indication: PARAPARESIS
     Dosage: 1000 UNITS
     Route: 051
     Dates: start: 20150424, end: 20150424

REACTIONS (6)
  - Neuromuscular toxicity [Not Recovered/Not Resolved]
  - Hemiparesis [Recovered/Resolved]
  - Dysphagia [Recovered/Resolved]
  - Dyspnoea [Recovered/Resolved]
  - Paraparesis [Not Recovered/Not Resolved]
  - Condition aggravated [Not Recovered/Not Resolved]

NARRATIVE: CASE EVENT DATE: 2015
